FAERS Safety Report 19143933 (Version 2)
Quarter: 2023Q2

REPORT INFORMATION
  Report Type: Spontaneous
  Country: ES (occurrence: ES)
  Receive Date: 20210416
  Receipt Date: 20230415
  Transmission Date: 20230721
  Serious: Yes (Life-Threatening, Hospitalization, Other)
  Sender: FDA-Public Use
  Company Number: ES-ACTAVIS-2005A-00887

PATIENT
  Age: 60 Year
  Sex: Female

DRUGS (3)
  1. LATANOPROST [Interacting]
     Active Substance: LATANOPROST
     Indication: Glaucoma
     Dosage: UNKNOWN
     Route: 031
     Dates: start: 2005
  2. DORZOLAMIDE [Suspect]
     Active Substance: DORZOLAMIDE
     Indication: Glaucoma
     Dosage: UNK
     Route: 065
     Dates: start: 2005
  3. TIMOLOL [Interacting]
     Active Substance: TIMOLOL
     Indication: Glaucoma
     Dosage: UNK
     Route: 065
     Dates: start: 2005

REACTIONS (15)
  - Toxic epidermal necrolysis [Recovered/Resolved]
  - Leukopenia [Recovered/Resolved]
  - Neutropenia [Recovered/Resolved]
  - Pyrexia [Recovered/Resolved]
  - Face oedema [Recovered/Resolved]
  - Erythema [Recovered/Resolved]
  - Liver function test abnormal [Recovered/Resolved]
  - Conjunctivitis [Recovered/Resolved]
  - Genital erythema [Recovered/Resolved]
  - Lymphopenia [Recovered/Resolved]
  - Hypoalbuminaemia [Recovered/Resolved]
  - Oral mucosa erosion [Recovered/Resolved]
  - Skin exfoliation [Recovered/Resolved]
  - Conjunctival erosion [Recovered/Resolved]
  - Drug interaction [Unknown]

NARRATIVE: CASE EVENT DATE: 20050101
